FAERS Safety Report 7666077-5 (Version None)
Quarter: 2011Q3

REPORT INFORMATION
  Report Type: 
  Country: None (occurrence: None)
  Receive Date: 20110806
  Receipt Date: 20110527
  Transmission Date: 20111222
  Serious: No
  Sender: FDA-Public Use
  Company Number: US-ABBOTT-11P-163-0728814-00

PATIENT
  Sex: Female
  Weight: 74.91 kg

DRUGS (2)
  1. VITAMIN D [Concomitant]
     Indication: PRODUCT USED FOR UNKNOWN INDICATION
  2. NIASPAN [Suspect]
     Indication: PRODUCT USED FOR UNKNOWN INDICATION
     Dosage: AT BEDTIME
     Dates: start: 20110525

REACTIONS (3)
  - SWELLING FACE [None]
  - GENERALISED ERYTHEMA [None]
  - FLUSHING [None]
